FAERS Safety Report 7623812-X (Version None)
Quarter: 2011Q3

REPORT INFORMATION
  Report Type: 
  Country: None (occurrence: None)
  Receive Date: 20110719
  Receipt Date: 20110719
  Transmission Date: 20111222
  Serious: No
  Sender: FDA-Public Use
  Company Number: None

PATIENT
  Sex: Female
  Weight: 52.6173 kg

DRUGS (1)
  1. NAPROXEN [Suspect]
     Indication: PAIN
     Dosage: 375 MG TABLET
     Dates: start: 20110526

REACTIONS (13)
  - HEADACHE [None]
  - BURNING SENSATION [None]
  - HAEMATEMESIS [None]
  - SWELLING FACE [None]
  - OROPHARYNGEAL BLISTERING [None]
  - TINNITUS [None]
  - FLATULENCE [None]
  - ABDOMINAL PAIN UPPER [None]
  - OEDEMA PERIPHERAL [None]
  - NAUSEA [None]
  - CHEST PAIN [None]
  - NASAL CONGESTION [None]
  - SKIN EXFOLIATION [None]
